FAERS Safety Report 12908502 (Version 2)
Quarter: 2016Q4

REPORT INFORMATION
  Report Type: Spontaneous
  Country: US (occurrence: US)
  Receive Date: 20161103
  Receipt Date: 20161118
  Transmission Date: 20170207
  Serious: Yes (Hospitalization)
  Sender: FDA-Public Use
  Company Number: US-MAYNE PHARMA-2016MYN000766

PATIENT
  Sex: Female

DRUGS (13)
  1. TOPAMAX [Concomitant]
     Active Substance: TOPIRAMATE
  2. METFORMIN [Concomitant]
     Active Substance: METFORMIN HYDROCHLORIDE
  3. PROTONIX                           /00661201/ [Concomitant]
     Active Substance: OMEPRAZOLE
  4. CLOZAPINE. [Suspect]
     Active Substance: CLOZAPINE
     Dosage: 200 MG, BID
     Route: 048
     Dates: start: 2015
  5. NORCO [Concomitant]
     Active Substance: ACETAMINOPHEN\HYDROCODONE BITARTRATE
  6. HYDROCHLOROTHIAZIDE. [Concomitant]
     Active Substance: HYDROCHLOROTHIAZIDE
  7. CLOZAPINE. [Suspect]
     Active Substance: CLOZAPINE
     Indication: PSYCHOTIC DISORDER
     Dosage: 25 MG, UNK
     Route: 048
     Dates: start: 20150826
  8. DEPAKOTE [Concomitant]
     Active Substance: DIVALPROEX SODIUM
  9. CLOZAPINE. [Suspect]
     Active Substance: CLOZAPINE
     Dosage: 25 MG, AT BEDTIME
     Route: 048
     Dates: start: 2015
  10. LEVOTHYROXINE. [Concomitant]
     Active Substance: LEVOTHYROXINE
  11. KLONOPIN [Concomitant]
     Active Substance: CLONAZEPAM
  12. GLUCOTROL [Concomitant]
     Active Substance: GLIPIZIDE
  13. GEODON [Concomitant]
     Active Substance: ZIPRASIDONE HYDROCHLORIDE\ZIPRASIDONE MESYLATE

REACTIONS (10)
  - Schizoaffective disorder [Recovered/Resolved]
  - Paranoia [Recovered/Resolved]
  - Delusion of grandeur [Recovered/Resolved]
  - Schizophrenia [Recovered/Resolved]
  - Bipolar disorder [Recovered/Resolved]
  - Homicidal ideation [Recovered/Resolved]
  - Psychotic disorder [Recovered/Resolved]
  - Physical assault [Recovered/Resolved]
  - Hallucination, auditory [Recovered/Resolved]
  - Depressed mood [Recovered/Resolved]

NARRATIVE: CASE EVENT DATE: 2015
